FAERS Safety Report 9369359 (Version 1)
Quarter: 2013Q2

REPORT INFORMATION
  Report Type: Spontaneous
  Country: DE (occurrence: DE)
  Receive Date: 20130626
  Receipt Date: 20130626
  Transmission Date: 20140414
  Serious: Yes (Hospitalization)
  Sender: FDA-Public Use
  Company Number: DE-ROCHE-1241583

PATIENT
  Age: 44 Year
  Sex: 0

DRUGS (2)
  1. TOCILIZUMAB [Suspect]
     Indication: NEUROMYELITIS OPTICA
     Route: 065
     Dates: start: 201011
  2. TOCILIZUMAB [Suspect]
     Indication: OFF LABEL USE
     Route: 065
     Dates: start: 201012

REACTIONS (1)
  - Optic neuritis [Recovering/Resolving]
